FAERS Safety Report 13008128 (Version 1)
Quarter: 2016Q4

REPORT INFORMATION
  Report Type: Other
  Country: KR (occurrence: KR)
  Receive Date: 20161208
  Receipt Date: 20161208
  Transmission Date: 20170207
  Serious: Yes (Death)
  Sender: FDA-Public Use
  Company Number: KR-APOTEX-2016AP015598

PATIENT

DRUGS (1)
  1. PAXIL CR [Suspect]
     Active Substance: PAROXETINE HYDROCHLORIDE
     Indication: PRODUCT USED FOR UNKNOWN INDICATION
     Route: 065

REACTIONS (2)
  - Cholestatic liver injury [Fatal]
  - Toxic epidermal necrolysis [Fatal]
